FAERS Safety Report 24759400 (Version 2)
Quarter: 2025Q1

REPORT INFORMATION
  Report Type: Spontaneous
  Country: US (occurrence: US)
  Receive Date: 20241220
  Receipt Date: 20250321
  Transmission Date: 20250409
  Serious: No
  Sender: BRAEBURN PHARMACEUTICALS
  Company Number: US-BRAEBURN-US-BRA-24-000967

PATIENT
  Age: 30 Year
  Sex: Female

DRUGS (2)
  1. BRIXADI [Suspect]
     Active Substance: BUPRENORPHINE
     Indication: Drug use disorder
     Dosage: UNK, WEEKLY
     Route: 065
  2. BRIXADI [Suspect]
     Active Substance: BUPRENORPHINE
     Dosage: 64 MILLIGRAM, MONTHLY
     Route: 058
     Dates: start: 20240529, end: 20241007

REACTIONS (1)
  - Injection site inflammation [Recovered/Resolved]

NARRATIVE: CASE EVENT DATE: 20240618
